FAERS Safety Report 4620666-0 (Version None)
Quarter: 2005Q1

REPORT INFORMATION
  Report Type: 
  Country: None (occurrence: None)
  Receive Date: 20050325
  Receipt Date: 20050317
  Transmission Date: 20050727
  Serious: Yes (Death, Life-Threatening, Hospitalization, Other)
  Sender: FDA-Public Use
  Company Number: HQWYE616008MAR04

PATIENT
  Age: 74 Year
  Sex: Female
  Weight: 71 kg

DRUGS (12)
  1. MYLOTARG [Suspect]
     Indication: ACUTE MYELOID LEUKAEMIA
     Dosage: 15 MG 1X PER 1 DAY, INTRAVENOUS
     Route: 042
     Dates: start: 20040302, end: 20040302
  2. LASIX [Concomitant]
  3. PROTONIX [Concomitant]
  4. ALLOPURINOL [Concomitant]
  5. TYLENOL [Concomitant]
  6. HALDOL [Concomitant]
  7. ARICEPT [Concomitant]
  8. CELEXA [Concomitant]
  9. ZOSYN [Concomitant]
  10. TOBRAMYCIN [Concomitant]
  11. FLAGYL [Concomitant]
  12. TRETINOIN [Concomitant]

REACTIONS (4)
  - ARRHYTHMIA [None]
  - DISSEMINATED INTRAVASCULAR COAGULATION [None]
  - HYPOTENSION [None]
  - RESPIRATORY DISTRESS [None]
